FAERS Safety Report 11525004 (Version 2)
Quarter: 2015Q4

REPORT INFORMATION
  Report Type: Spontaneous
  Country: US (occurrence: US)
  Receive Date: 20150918
  Receipt Date: 20151208
  Transmission Date: 20160304
  Serious: No
  Sender: FDA-Public Use
  Company Number: US-CELGENEUS-USA-2015085168

PATIENT
  Sex: Female

DRUGS (3)
  1. OTEZLA [Suspect]
     Active Substance: APREMILAST
     Indication: PSORIATIC ARTHROPATHY
     Dosage: TITRATION
     Route: 048
     Dates: start: 20150701, end: 20150807
  2. ADVIL [Concomitant]
     Active Substance: IBUPROFEN
     Indication: HEADACHE
     Route: 065
  3. IBUPROFEN. [Concomitant]
     Active Substance: IBUPROFEN
     Indication: HEADACHE
     Route: 065

REACTIONS (3)
  - Diarrhoea [Unknown]
  - Headache [Unknown]
  - Nausea [Unknown]
